FAERS Safety Report 8948113 (Version 1)
Quarter: 2012Q4

REPORT INFORMATION
  Report Type: Spontaneous
  Country: IT (occurrence: None)
  Receive Date: 20121127
  Receipt Date: 20121127
  Transmission Date: 20130627
  Serious: Yes (Other)
  Sender: FDA-Public Use
  Company Number: TIF2012A00085

PATIENT
  Age: 62 Year
  Sex: Male

DRUGS (3)
  1. COMPETACT [Suspect]
     Indication: INSULIN-REQUIRING TYPE 2 DIABETES MELLITUS
     Route: 048
     Dates: start: 20100301, end: 20121025
  2. SIMESTAT (ROSUVASTATIN CALCIUM) [Concomitant]
  3. METFORALMILLE (METFORMIN HYDROCHLORIDE) [Concomitant]

REACTIONS (1)
  - Haematuria [None]
